FAERS Safety Report 8315720-6 (Version None)
Quarter: 2012Q2

REPORT INFORMATION
  Report Type: 
  Country: None (occurrence: None)
  Receive Date: 20120426
  Receipt Date: 20120423
  Transmission Date: 20120825
  Serious: Yes (Death)
  Sender: FDA-Public Use
  Company Number: FR-MERCK-1204FRA00109

PATIENT
  Age: 80 Year
  Sex: Male
  Weight: 82 kg

DRUGS (7)
  1. GLYBURIDE [Concomitant]
     Indication: TYPE 2 DIABETES MELLITUS
     Route: 048
     Dates: start: 20100226, end: 20110325
  2. METFORMIN [Concomitant]
     Indication: TYPE 2 DIABETES MELLITUS
     Route: 048
     Dates: start: 20100226
  3. METFORMIN [Concomitant]
     Route: 048
     Dates: start: 20090101, end: 20100225
  4. JANUVIA [Suspect]
     Indication: TYPE 2 DIABETES MELLITUS
     Route: 048
     Dates: start: 20101206
  5. GLYBURIDE [Concomitant]
     Route: 048
     Dates: start: 20120130
  6. GLYBURIDE [Concomitant]
     Route: 048
     Dates: start: 20110326, end: 20110626
  7. GLYBURIDE [Concomitant]
     Route: 048
     Dates: start: 20110627, end: 20120129

REACTIONS (2)
  - HYPOGLYCAEMIA [None]
  - BRONCHITIS BACTERIAL [None]
